FAERS Safety Report 16986905 (Version 1)
Quarter: 2019Q4

REPORT INFORMATION
  Report Type: Spontaneous
  Country: PL (occurrence: PL)
  Receive Date: 20191102
  Receipt Date: 20191102
  Transmission Date: 20200122
  Serious: Yes (Death, Hospitalization, Other)
  Sender: FDA-Public Use
  Company Number: PL-AUROBINDO-AUR-APL-2019-070082

PATIENT
  Age: 48 Year
  Sex: Female

DRUGS (13)
  1. AMOXICILLIN+CLAVULANIC ACID [Suspect]
     Active Substance: AMOXICILLIN\CLAVULANIC ACID
     Indication: PRODUCT USED FOR UNKNOWN INDICATION
     Dosage: UNK
     Route: 042
  2. PACLITAXEL. [Suspect]
     Active Substance: PACLITAXEL
     Indication: NEOPLASM MALIGNANT
     Dosage: UNK
     Route: 065
  3. ACETYLCYSTEINE. [Suspect]
     Active Substance: ACETYLCYSTEINE
     Indication: PRODUCT USED FOR UNKNOWN INDICATION
     Dosage: UNK
     Route: 042
  4. PANTOPRAZOLE [Suspect]
     Active Substance: PANTOPRAZOLE
     Indication: PRODUCT USED FOR UNKNOWN INDICATION
     Dosage: UNK
     Route: 048
  5. MORPHINE [Concomitant]
     Active Substance: MORPHINE
     Indication: PAIN
     Dosage: UNK, AS NEEDED
     Route: 058
  6. PREDNISONE. [Suspect]
     Active Substance: PREDNISONE
     Indication: PRODUCT USED FOR UNKNOWN INDICATION
     Dosage: UNK
     Route: 065
  7. FUROSEMIDE. [Suspect]
     Active Substance: FUROSEMIDE
     Indication: PRODUCT USED FOR UNKNOWN INDICATION
     Dosage: UNK
     Route: 065
  8. CLEMASTINE [Suspect]
     Active Substance: CLEMASTINE
     Indication: NEOPLASM MALIGNANT
     Dosage: UNK
     Route: 065
  9. PARACETAMOL [Concomitant]
     Active Substance: ACETAMINOPHEN
     Indication: PAIN
     Dosage: UNK
     Route: 042
  10. DEXAMETHASONE. [Suspect]
     Active Substance: DEXAMETHASONE
     Indication: NEOPLASM MALIGNANT
     Dosage: UNK
     Route: 048
  11. MIDAZOLAM [Concomitant]
     Active Substance: MIDAZOLAM HYDROCHLORIDE
     Indication: PAIN
     Dosage: UNK
     Route: 042
  12. BUPRENORPHINE. [Concomitant]
     Active Substance: BUPRENORPHINE
     Indication: PAIN
     Dosage: UNK
     Route: 062
  13. ONDANSETRON [Suspect]
     Active Substance: ONDANSETRON
     Indication: NEOPLASM MALIGNANT
     Dosage: UNK
     Route: 065

REACTIONS (4)
  - Drug ineffective [Fatal]
  - Condition aggravated [Fatal]
  - Dyspnoea [Fatal]
  - Anxiety [Fatal]
